FAERS Safety Report 8004966-2 (Version None)
Quarter: 2011Q4

REPORT INFORMATION
  Report Type: 
  Country: None (occurrence: None)
  Receive Date: 20111220
  Receipt Date: 20111205
  Transmission Date: 20120403
  Serious: Yes (Hospitalization)
  Sender: FDA-Public Use
  Company Number: TR-1189359

PATIENT
  Age: 65 Year
  Sex: Male

DRUGS (1)
  1. ALCAINE [Suspect]
     Dosage: OPHTHALMIC
     Route: 047

REACTIONS (11)
  - CORNEAL NEOVASCULARISATION [None]
  - CORNEAL EPITHELIUM DEFECT [None]
  - IRITIS [None]
  - CORNEAL INFILTRATES [None]
  - DRUG ABUSE [None]
  - KERATOPATHY [None]
  - CORNEAL OEDEMA [None]
  - HYPOPYON [None]
  - LEGAL PROBLEM [None]
  - VISUAL ACUITY REDUCED [None]
  - TREATMENT NONCOMPLIANCE [None]
